FAERS Safety Report 6534506-6 (Version None)
Quarter: 2010Q1

REPORT INFORMATION
  Report Type: 
  Country: None (occurrence: None)
  Receive Date: 20100112
  Receipt Date: 20100102
  Transmission Date: 20100710
  Serious: Yes (Other)
  Sender: FDA-Public Use
  Company Number: GR-PFIZER INC-2010000745

PATIENT
  Age: 34 Year
  Sex: Male

DRUGS (1)
  1. VIBRAMYCIN [Suspect]
     Indication: VIRAL INFECTION
     Dosage: 100 MG, 1X/DAY
     Route: 048
     Dates: start: 20100102

REACTIONS (3)
  - CHEST DISCOMFORT [None]
  - FEELING COLD [None]
  - TACHYCARDIA [None]
